FAERS Safety Report 7720914-4 (Version None)
Quarter: 2011Q3

REPORT INFORMATION
  Report Type: 
  Country: None (occurrence: None)
  Receive Date: 20110831
  Receipt Date: 20110830
  Transmission Date: 20111222
  Serious: Yes (Hospitalization, Other)
  Sender: FDA-Public Use
  Company Number: DE-ABBOTT-10P-062-0617549-00

PATIENT
  Sex: Female
  Weight: 105 kg

DRUGS (2)
  1. HUMIRA [Suspect]
     Indication: PSORIASIS
     Dates: start: 20080315, end: 20091215
  2. HUMIRA [Suspect]
     Dates: start: 20100101

REACTIONS (3)
  - UNINTENDED PREGNANCY [None]
  - ABORTION INDUCED [None]
  - POSTPARTUM DISORDER [None]
